FAERS Safety Report 20383642 (Version 1)
Quarter: 2022Q1

REPORT INFORMATION
  Report Type: Spontaneous
  Country: US (occurrence: None)
  Receive Date: 20220127
  Receipt Date: 20220127
  Transmission Date: 20220424
  Serious: Yes (Life-Threatening, Hospitalization, Disabling)
  Sender: FDA-Public Use
  Company Number: None

PATIENT
  Age: 70 Year
  Sex: Male
  Weight: 95.85 kg

DRUGS (1)
  1. VEKLURY [Suspect]
     Active Substance: REMDESIVIR
     Indication: COVID-19
     Dosage: FREQUENCY : DAILY;?
     Route: 042
     Dates: start: 20210823, end: 20210830

REACTIONS (13)
  - General physical health deterioration [None]
  - Dyspnoea [None]
  - Cold sweat [None]
  - Pyrexia [None]
  - Wheezing [None]
  - Neuropathy peripheral [None]
  - Alopecia [None]
  - Trichorrhexis [None]
  - Leukocytosis [None]
  - Blood test abnormal [None]
  - Type 2 diabetes mellitus [None]
  - Pulmonary fibrosis [None]
  - Myelocyte present [None]

NARRATIVE: CASE EVENT DATE: 20210815
